FAERS Safety Report 9685202 (Version 1)
Quarter: 2013Q4

REPORT INFORMATION
  Report Type: Spontaneous
  Country: US (occurrence: None)
  Receive Date: 20131112
  Receipt Date: 20131112
  Transmission Date: 20140711
  Serious: No
  Sender: FDA-Public Use
  Company Number: None

PATIENT
  Age: 46 None
  Sex: Male

DRUGS (4)
  1. LISINOPRIL [Suspect]
     Dosage: 5 TABS TO 10 ... , 1 P    ONCE DAQILY MOUTH
     Route: 048
     Dates: start: 2008
  2. METFORMIN [Concomitant]
  3. LISINOPRIL [Concomitant]
  4. ALEVE [Concomitant]

REACTIONS (1)
  - Tongue disorder [None]
